FAERS Safety Report 9146894 (Version 4)
Quarter: 2013Q1

REPORT INFORMATION
  Report Type: Spontaneous
  Country: TR (occurrence: None)
  Receive Date: 20130225
  Receipt Date: 20130311
  Transmission Date: 20140127
  Serious: Yes (Death)
  Sender: FDA-Public Use
  Company Number: 2013-0814

PATIENT
  Age: 9 Year
  Sex: Female
  Weight: 9.3 kg

DRUGS (3)
  1. INCRELEX [Suspect]
     Indication: DWARFISM
     Dosage: 0.12MG/KG (0.12 MG/KG, NOT
     Dates: start: 20121218
  2. INCRELEX [Suspect]
     Dosage: 0.12MG/KG (0.12 MG/KG, NOT
     Dates: start: 20121218
  3. DEXTROSE [Suspect]
     Indication: HYPOGLYCAEMIA
     Dosage: 250 ML (250 ML, NOT REPORTED
     Dates: start: 20130124

REACTIONS (3)
  - Hyperglycaemia [None]
  - Coma [None]
  - Hypoglycaemia [None]
